FAERS Safety Report 24962626 (Version 1)
Quarter: 2025Q1

REPORT INFORMATION
  Report Type: Other
  Country: JP (occurrence: JP)
  Receive Date: 20250212
  Receipt Date: 20250212
  Transmission Date: 20250409
  Serious: Yes (Life-Threatening, Hospitalization, Other)
  Sender: INNOGENIX, LLC
  Company Number: JP-Innogenix, LLC-2170992

PATIENT
  Age: 5 Decade
  Sex: Female

DRUGS (5)
  1. HALOPERIDOL [Suspect]
     Active Substance: HALOPERIDOL
     Indication: Acute psychosis
  2. DIAZEPAM [Suspect]
     Active Substance: DIAZEPAM
  3. FLUNITRAZEPAM [Suspect]
     Active Substance: FLUNITRAZEPAM
  4. LEVOMEPROMAZINE [Suspect]
     Active Substance: LEVOMEPROMAZINE
  5. ARIPIPRAZOLE [Suspect]
     Active Substance: ARIPIPRAZOLE

REACTIONS (2)
  - Urinary bladder rupture [Recovered/Resolved]
  - Urinary retention [Recovered/Resolved]
